FAERS Safety Report 7395640-4 (Version None)
Quarter: 2011Q2

REPORT INFORMATION
  Report Type: 
  Country: None (occurrence: None)
  Receive Date: 20110405
  Receipt Date: 20110331
  Transmission Date: 20111010
  Serious: Yes (Hospitalization)
  Sender: FDA-Public Use
  Company Number: JP-PFIZER INC-2011070012

PATIENT
  Age: 68 Year
  Sex: Female

DRUGS (3)
  1. PREDNISOLONE [Suspect]
     Dosage: UNK
     Route: 048
     Dates: start: 20110303, end: 20110322
  2. MUCOSTA [Suspect]
     Dosage: UNK
     Route: 048
     Dates: start: 20110303, end: 20110322
  3. AZULFIDINE [Suspect]
     Indication: RHEUMATOID ARTHRITIS
     Dosage: 1000 MG, 1X/DAY
     Dates: start: 20110303, end: 20110322

REACTIONS (2)
  - PYREXIA [None]
  - RASH [None]
